FAERS Safety Report 9805603 (Version 12)
Quarter: 2020Q1

REPORT INFORMATION
  Report Type: Report from Study
  Country: US (occurrence: US)
  Receive Date: 20140109
  Receipt Date: 20200306
  Transmission Date: 20200409
  Serious: Yes (Life-Threatening, Hospitalization, Disabling, Other)
  Sender: FDA-Public Use
  Company Number: US-SA-2013SA102807

PATIENT
  Age: 62 Year
  Sex: Male

DRUGS (3)
  1. TERIFLUNOMIDE. [Suspect]
     Active Substance: TERIFLUNOMIDE
     Dosage: 14 MG, QD
     Route: 048
  2. AMPYRA [Suspect]
     Active Substance: DALFAMPRIDINE
     Dosage: UNK UNK,UNK
     Route: 065
  3. TERIFLUNOMIDE. [Suspect]
     Active Substance: TERIFLUNOMIDE
     Indication: MULTIPLE SCLEROSIS
     Dosage: 14 MG,QD
     Route: 048
     Dates: start: 20130919, end: 2016

REACTIONS (25)
  - Fall [Unknown]
  - Pneumonia [Unknown]
  - Fall [Recovered/Resolved]
  - Condition aggravated [Not Recovered/Not Resolved]
  - Multiple sclerosis relapse [Not Recovered/Not Resolved]
  - Spinal pain [Recovered/Resolved]
  - Pain in extremity [Not Recovered/Not Resolved]
  - Flank pain [Not Recovered/Not Resolved]
  - Pulmonary embolism [Unknown]
  - Contusion [Unknown]
  - Anxiety [Not Recovered/Not Resolved]
  - Back pain [Not Recovered/Not Resolved]
  - Multiple sclerosis [Not Recovered/Not Resolved]
  - Dysgraphia [Not Recovered/Not Resolved]
  - Alopecia [Not Recovered/Not Resolved]
  - Euphoric mood [Unknown]
  - Malaise [Unknown]
  - Fatigue [Not Recovered/Not Resolved]
  - Gait disturbance [Not Recovered/Not Resolved]
  - Urinary retention [Unknown]
  - Asthenia [Recovering/Resolving]
  - Hemiparesis [Recovered/Resolved]
  - Insomnia [Recovered/Resolved]
  - Influenza [Unknown]
  - Incontinence [Unknown]

NARRATIVE: CASE EVENT DATE: 20130930
